FAERS Safety Report 12575211 (Version 2)
Quarter: 2016Q3

REPORT INFORMATION
  Report Type: Spontaneous
  Country: US (occurrence: US)
  Receive Date: 20160720
  Receipt Date: 20160803
  Transmission Date: 20161109
  Serious: Yes (Life-Threatening, Hospitalization, Other)
  Sender: FDA-Public Use
  Company Number: US-XENOPORT, INC.-2016US006829

PATIENT
  Age: 67 Year
  Sex: Female

DRUGS (2)
  1. HORIZANT [Suspect]
     Active Substance: GABAPENTIN ENACARBIL
     Indication: BACK PAIN
     Dosage: 300 MG, TWICE DAILY
     Route: 048
  2. HORIZANT [Suspect]
     Active Substance: GABAPENTIN ENACARBIL
     Indication: SCIATICA
     Dosage: 300 MG, DAILY
     Route: 048

REACTIONS (5)
  - Paraesthesia [Unknown]
  - Headache [Unknown]
  - Cerebrovascular accident [Recovering/Resolving]
  - Vision blurred [Recovered/Resolved]
  - Off label use [Unknown]

NARRATIVE: CASE EVENT DATE: 20160423
